FAERS Safety Report 23896990 (Version 1)
Quarter: 2024Q2

REPORT INFORMATION
  Report Type: Spontaneous
  Country: US (occurrence: US)
  Receive Date: 20240524
  Receipt Date: 20240524
  Transmission Date: 20240716
  Serious: No
  Sender: FDA-Public Use
  Company Number: US-PFIZER INC-PV202400067626

PATIENT
  Age: 28 Year
  Sex: Female

DRUGS (2)
  1. BOSULIF [Suspect]
     Active Substance: BOSUTINIB MONOHYDRATE
     Dosage: 400 MG, DAILY (ONE TABLET DAILY FOR 30 DAYS)
     Route: 048
     Dates: start: 20200814
  2. BOSULIF [Suspect]
     Active Substance: BOSUTINIB MONOHYDRATE
     Dosage: 500 MG, DAILY (DAY 1 TO DAY 28, EVERY 28 DAYS)
     Route: 048
     Dates: start: 20220406

REACTIONS (1)
  - Asthma [Unknown]
